FAERS Safety Report 20199025 (Version 2)
Quarter: 2021Q4

REPORT INFORMATION
  Report Type: Spontaneous
  Country: US (occurrence: US)
  Receive Date: 20211217
  Receipt Date: 20211229
  Transmission Date: 20220304
  Serious: Yes (Hospitalization)
  Sender: FDA-Public Use
  Company Number: US-KARYOPHARM-2021KPT001322

PATIENT

DRUGS (14)
  1. XPOVIO [Suspect]
     Active Substance: SELINEXOR
     Indication: Plasma cell myeloma
     Dosage: 60 MG, WEEKLY
     Route: 048
     Dates: start: 20210114, end: 202102
  2. XPOVIO [Suspect]
     Active Substance: SELINEXOR
     Indication: Waldenstrom^s macroglobulinaemia
     Dosage: 40 MG, WEEKLY
     Route: 048
     Dates: start: 2021
  3. SEROQUEL [Concomitant]
     Active Substance: QUETIAPINE FUMARATE
  4. PANTOPRAZOLE [Concomitant]
     Active Substance: PANTOPRAZOLE
  5. LETROZOLE [Concomitant]
     Active Substance: LETROZOLE
  6. ZOFRAN [Concomitant]
     Active Substance: ONDANSETRON HYDROCHLORIDE
  7. POTASSIUM CHLORIDE [Concomitant]
     Active Substance: POTASSIUM CHLORIDE
  8. DIBASIC POTASSIUM PHOSPHATE [Concomitant]
     Active Substance: DIBASIC POTASSIUM PHOSPHATE
  9. CIPROFLOXACIN [Concomitant]
     Active Substance: CIPROFLOXACIN
  10. ACYCLOVIR [Concomitant]
     Active Substance: ACYCLOVIR
  11. CEFPODOXIME [Concomitant]
     Active Substance: CEFPODOXIME
  12. URSODIOL [Concomitant]
     Active Substance: URSODIOL
  13. TACROLIMUS [Concomitant]
     Active Substance: TACROLIMUS
  14. VANCOMYCIN [Concomitant]
     Active Substance: VANCOMYCIN

REACTIONS (3)
  - Pneumonia [Recovering/Resolving]
  - Diarrhoea [Unknown]
  - Fatigue [Unknown]

NARRATIVE: CASE EVENT DATE: 20210101
